FAERS Safety Report 10908905 (Version 1)
Quarter: 2015Q1

REPORT INFORMATION
  Report Type: Spontaneous
  Country: BR (occurrence: BR)
  Receive Date: 20150312
  Receipt Date: 20150312
  Transmission Date: 20150721
  Serious: Yes (Hospitalization, Other)
  Sender: FDA-Public Use
  Company Number: BR-ELI_LILLY_AND_COMPANY-BR201503001033

PATIENT
  Age: 73 Year
  Sex: Male
  Weight: 81 kg

DRUGS (1)
  1. GEMZAR [Suspect]
     Active Substance: GEMCITABINE HYDROCHLORIDE
     Indication: BLADDER CANCER
     Dosage: 1967 MG, D1 AND D8
     Route: 065
     Dates: start: 20150106

REACTIONS (3)
  - Haematuria [Recovered/Resolved]
  - Pancytopenia [Recovered/Resolved]
  - Urethral obstruction [Recovered/Resolved]

NARRATIVE: CASE EVENT DATE: 20150119
